FAERS Safety Report 14702163 (Version 3)
Quarter: 2019Q1

REPORT INFORMATION
  Report Type: Report from Study
  Country: US (occurrence: US)
  Receive Date: 20180401
  Receipt Date: 20190124
  Transmission Date: 20190417
  Serious: Yes (Other)
  Sender: FDA-Public Use
  Company Number: PHEH2018US012315

PATIENT
  Age: 70 Year
  Sex: Male
  Weight: 66.6 kg

DRUGS (2)
  1. LEVAQUIN [Concomitant]
     Active Substance: LEVOFLOXACIN
     Indication: PRODUCT USED FOR UNKNOWN INDICATION
     Dosage: 500 MG, (8D X 7 DAYS)
     Route: 065
  2. AFINITOR [Suspect]
     Active Substance: EVEROLIMUS
     Indication: CARCINOID TUMOUR
     Dosage: 10 MG, UNK
     Route: 048
     Dates: start: 20180110

REACTIONS (6)
  - Pneumonia [Recovered/Resolved]
  - Cough [Unknown]
  - Haematuria [Unknown]
  - Product use in unapproved indication [Unknown]
  - Pneumonia [Unknown]
  - Pyrexia [Unknown]

NARRATIVE: CASE EVENT DATE: 20180305
